FAERS Safety Report 4465822-X (Version None)
Quarter: 2004Q3

REPORT INFORMATION
  Report Type: 
  Country: None (occurrence: None)
  Receive Date: 20040930
  Receipt Date: 20040930
  Transmission Date: 20050211
  Serious: Yes (Other)
  Sender: FDA-Public Use
  Company Number: None

PATIENT
  Age: 84 Year
  Sex: Female
  Weight: 45.8133 kg

DRUGS (5)
  1. ARANESP [Suspect]
     Dosage: 200 MG SQ EVERY MONTH
     Dates: start: 20040707
  2. ARANESP [Suspect]
     Dosage: 200 MG SQ EVERY MONTH
     Dates: start: 20040804
  3. ARANESP [Suspect]
     Dosage: 200 MG SQ EVERY MONTH
     Dates: start: 20040901
  4. ARANESP [Suspect]
  5. ARANESP [Suspect]

REACTIONS (5)
  - ACTIVITIES OF DAILY LIVING IMPAIRED [None]
  - INSOMNIA [None]
  - PRURITUS [None]
  - RASH GENERALISED [None]
  - URTICARIA [None]
